FAERS Safety Report 12995709 (Version 1)
Quarter: 2016Q4

REPORT INFORMATION
  Report Type: Spontaneous
  Country: US (occurrence: US)
  Receive Date: 20161202
  Receipt Date: 20161202
  Transmission Date: 20170207
  Serious: Yes (Other)
  Sender: FDA-Public Use
  Company Number: US-JNJFOC-20161129372

PATIENT
  Sex: Female

DRUGS (1)
  1. XARELTO [Suspect]
     Active Substance: RIVAROXABAN
     Indication: THROMBOSIS
     Route: 048
     Dates: start: 20160415

REACTIONS (6)
  - Cardiac disorder [Not Recovered/Not Resolved]
  - Off label use [Unknown]
  - Renal disorder [Not Recovered/Not Resolved]
  - Incorrect dose administered [Unknown]
  - Gastric cancer recurrent [Not Recovered/Not Resolved]
  - Biopsy [Unknown]

NARRATIVE: CASE EVENT DATE: 20160415
